FAERS Safety Report 18494227 (Version 3)
Quarter: 2021Q1

REPORT INFORMATION
  Report Type: Other
  Country: US (occurrence: US)
  Receive Date: 20201112
  Receipt Date: 20210217
  Transmission Date: 20210419
  Serious: Yes (Hospitalization, Other)
  Sender: FDA-Public Use
  Company Number: US-INTERCEPT-PM2020002267

PATIENT
  Age: 41 Year
  Sex: Female

DRUGS (31)
  1. COLESTIPOL [Concomitant]
     Active Substance: COLESTIPOL
     Dosage: 5/7.5 GRAM, BID
     Route: 048
  2. THORAZINE [Concomitant]
     Active Substance: CHLORPROMAZINE
  3. OCALIVA [Suspect]
     Active Substance: OBETICHOLIC ACID
     Indication: PRIMARY BILIARY CHOLANGITIS
     Dosage: 5 MILLIGRAM, QD
     Route: 048
     Dates: start: 20191213
  4. CHOLESTYRAMINE. [Concomitant]
     Active Substance: CHOLESTYRAMINE
     Dosage: 4/5 GRAM, BID
     Route: 048
  5. AMITRIPTYLINE [Suspect]
     Active Substance: AMITRIPTYLINE
     Indication: NEUROPATHY PERIPHERAL
     Dosage: 75 MILLIGRAM, QD
     Route: 048
  6. URSODEOXYCHOLIC ACID [Concomitant]
     Active Substance: URSODIOL
     Dosage: 300 MILLIGRAM, BID
     Route: 048
  7. SINEMET [Concomitant]
     Active Substance: CARBIDOPA\LEVODOPA
     Dosage: 25/250 MILLIGRAM, BID
     Route: 048
  8. VIIBRYD [Concomitant]
     Active Substance: VILAZODONE HYDROCHLORIDE
     Dosage: 40 MILLIGRAM, QD
     Route: 048
  9. BACLOFEN. [Concomitant]
     Active Substance: BACLOFEN
     Dosage: 10 MILLIGRAM, BID
     Route: 048
  10. LAMICTAL [Concomitant]
     Active Substance: LAMOTRIGINE
     Dosage: UNK, BID
     Route: 048
  11. NYSTATIN. [Concomitant]
     Active Substance: NYSTATIN
     Dosage: 100000 INTERNATIONAL UNIT PER GRAM, BID
     Route: 061
  12. IBUPROFEN. [Concomitant]
     Active Substance: IBUPROFEN
     Dosage: 600 MILLIGRAM, Q6H
     Route: 048
  13. SYNTHROID [Concomitant]
     Active Substance: LEVOTHYROXINE SODIUM
     Dosage: 50 MICROGRAM, QD
     Route: 048
  14. DIFLUCAN [Concomitant]
     Active Substance: FLUCONAZOLE
     Dosage: 150 MILLIGRAM, QD
     Route: 048
  15. NAPROXEN. [Concomitant]
     Active Substance: NAPROXEN
     Dosage: UNK, TID
     Route: 048
  16. ARICEPT [Concomitant]
     Active Substance: DONEPEZIL HYDROCHLORIDE
     Indication: COGNITIVE DISORDER
     Dosage: 5 MILLIGRAM, QD
     Route: 048
  17. MIRAPEX [Concomitant]
     Active Substance: PRAMIPEXOLE DIHYDROCHLORIDE
     Indication: RESTLESS LEGS SYNDROME
     Dosage: 2 MILLIGRAM, BID
  18. OCALIVA [Suspect]
     Active Substance: OBETICHOLIC ACID
     Dosage: 10 MILLIGRAM, QD
     Route: 048
     Dates: start: 20200218
  19. URSODEOXYCHOLIC ACID [Concomitant]
     Active Substance: URSODIOL
     Dosage: 15 MILLIGRAM/KILOGRAM, QD
     Dates: start: 20190305, end: 20200514
  20. NEURONTIN [Concomitant]
     Active Substance: GABAPENTIN
     Dosage: 600 MILLIGRAM, TID
     Route: 048
  21. OXYCODONE [Concomitant]
     Active Substance: OXYCODONE
     Dosage: 10 MILLIGRAM, Q4H
     Route: 048
  22. ATIVAN [Concomitant]
     Active Substance: LORAZEPAM
     Route: 042
  23. AMITRIPTYLINE [Suspect]
     Active Substance: AMITRIPTYLINE
     Indication: LUMBAR RADICULOPATHY
     Dosage: 25 MILLIGRAM, QD
     Route: 048
  24. CYCLOBENZAPRINE. [Concomitant]
     Active Substance: CYCLOBENZAPRINE
     Dosage: 10 MILLIGRAM, QD
     Route: 048
  25. OMEPRAZOLE. [Concomitant]
     Active Substance: OMEPRAZOLE
     Dosage: 40 MILLIGRAM, QD
     Route: 048
  26. ASPIRIN [ACETYLSALICYLIC ACID] [Concomitant]
     Active Substance: ASPIRIN
     Dosage: 81 MILLIGRAM, QD
     Route: 048
  27. PERCOCET [Concomitant]
     Active Substance: ACETAMINOPHEN\OXYCODONE HYDROCHLORIDE
     Dosage: 5/325 MILLIGRAM, Q4H
     Route: 048
  28. PROCHLORPERAZINE. [Concomitant]
     Active Substance: PROCHLORPERAZINE
     Dosage: 10 MILLIGRAM, TID
     Route: 048
  29. VITAMIN E [Concomitant]
     Active Substance: .ALPHA.-TOCOPHEROL
     Dosage: UNK, QD
     Route: 048
  30. ZANAFLEX [Concomitant]
     Active Substance: TIZANIDINE HYDROCHLORIDE
     Dosage: 6 MILLIGRAM, Q6H
     Route: 048
  31. ARICEPT [Concomitant]
     Active Substance: DONEPEZIL HYDROCHLORIDE
     Indication: AMNESIA

REACTIONS (19)
  - Lumbar radiculopathy [Unknown]
  - Hepatic fibrosis [Unknown]
  - Orthostatic hypotension [Unknown]
  - Seizure [Recovered/Resolved]
  - Albumin globulin ratio abnormal [Unknown]
  - Confusional state [Unknown]
  - Vestibular disorder [Unknown]
  - Somnolence [Unknown]
  - Photopsia [Unknown]
  - Syncope [Unknown]
  - Migraine [Unknown]
  - Staring [Unknown]
  - Vertigo positional [Recovering/Resolving]
  - Hepatic steatosis [Unknown]
  - Vision blurred [Recovering/Resolving]
  - Dizziness [Recovering/Resolving]
  - Loss of consciousness [Unknown]
  - Ataxia [Unknown]
  - Unresponsive to stimuli [Recovered/Resolved]

NARRATIVE: CASE EVENT DATE: 2020
